FAERS Safety Report 5870241-5 (Version None)
Quarter: 2008Q3

REPORT INFORMATION
  Report Type: 
  Country: None (occurrence: None)
  Receive Date: 20080904
  Receipt Date: 20080827
  Transmission Date: 20090109
  Serious: Yes (Other)
  Sender: FDA-Public Use
  Company Number: US-BAXTER-2008BH009142

PATIENT
  Age: 41 Year
  Weight: 54 kg

DRUGS (1)
  1. DEXTROSE 5% AND SODIUM CHLORIDE W/ POTASSIUM CHLORIDE [Suspect]
     Indication: HYPOKALAEMIA
     Dosage: DOSE UNIT:UNKNOWN
     Route: 042
     Dates: start: 20080525, end: 20080525

REACTIONS (2)
  - ANAPHYLACTIC REACTION [None]
  - INFUSION RELATED REACTION [None]
